FAERS Safety Report 20654875 (Version 1)
Quarter: 2022Q1

REPORT INFORMATION
  Report Type: Spontaneous
  Country: US (occurrence: None)
  Receive Date: 20220330
  Receipt Date: 20220330
  Transmission Date: 20220423
  Serious: No
  Sender: FDA-Public Use
  Company Number: None

PATIENT
  Age: 69 Year
  Sex: Female
  Weight: 74.39 kg

DRUGS (15)
  1. CAPECITABINE [Suspect]
     Active Substance: CAPECITABINE
     Indication: Breast cancer
     Dosage: OTHER QUANTITY : 2000-1500MG;?FREQUENCY : TWICE A DAY;?
     Route: 048
     Dates: start: 20210209, end: 20220315
  2. ACETAMINOPHEN [Concomitant]
     Active Substance: ACETAMINOPHEN
  3. CALCIUM CARBONATE\VITAMIN D [Concomitant]
     Active Substance: CALCIUM CARBONATE\VITAMIN D
  4. DEXAMETHASONE [Concomitant]
     Active Substance: DEXAMETHASONE
  5. DOCUSATE [Concomitant]
     Active Substance: DOCUSATE
  6. FAMOTIDINE [Concomitant]
     Active Substance: FAMOTIDINE
  7. FULVESTRANT [Concomitant]
     Active Substance: FULVESTRANT
  8. LIDODERM [Concomitant]
     Active Substance: LIDOCAINE
  9. LORATADINE [Concomitant]
     Active Substance: LORATADINE
  10. ONDANSETRON [Concomitant]
     Active Substance: ONDANSETRON
  11. OXYCODONE [Concomitant]
     Active Substance: OXYCODONE
  12. PERIDEX [Concomitant]
     Active Substance: CHLORHEXIDINE GLUCONATE
  13. PROCHLORPERAZINE [Concomitant]
     Active Substance: PROCHLORPERAZINE
  14. XARELTO [Concomitant]
     Active Substance: RIVAROXABAN
  15. XGEVA [Concomitant]
     Active Substance: DENOSUMAB

REACTIONS (1)
  - Disease progression [None]
